FAERS Safety Report 24298221 (Version 1)
Quarter: 2024Q3

REPORT INFORMATION
  Report Type: Spontaneous
  Country: US (occurrence: None)
  Receive Date: 20240906
  Receipt Date: 20240906
  Transmission Date: 20241017
  Serious: Yes (Hospitalization)
  Sender: Public
  Company Number: None

PATIENT
  Sex: Female

DRUGS (6)
  1. OPSUMIT [Suspect]
     Active Substance: MACITENTAN
     Indication: Pulmonary arterial hypertension
     Dosage: FREQUENCY : DAILY;?
     Route: 048
     Dates: start: 202305
  2. REMODULIN [Concomitant]
  3. DEVICE [Concomitant]
     Active Substance: DEVICE
  4. SOD CHLOR [Concomitant]
  5. STERILE DILUENT [Concomitant]
  6. TREPROSTINIL [Concomitant]

REACTIONS (4)
  - Pneumonia [None]
  - Bacteraemia [None]
  - Overdose [None]
  - Drug titration error [None]
